FAERS Safety Report 21544174 (Version 1)
Quarter: 2022Q4

REPORT INFORMATION
  Report Type: Spontaneous
  Country: RU (occurrence: RU)
  Receive Date: 20221102
  Receipt Date: 20221102
  Transmission Date: 20230113
  Serious: Yes (Other)
  Sender: FDA-Public Use
  Company Number: RU-ASPEN-GLO2021RU000357

PATIENT

DRUGS (7)
  1. TOPOTECAN [Suspect]
     Active Substance: TOPOTECAN HYDROCHLORIDE
     Indication: Retinoblastoma
     Dosage: 0.5 MG, UNKNOWN
     Route: 013
  2. TOPOTECAN [Suspect]
     Active Substance: TOPOTECAN HYDROCHLORIDE
     Dosage: 0.6 MG, UNKNOWN
     Route: 013
  3. ETOPOSIDE [Suspect]
     Active Substance: ETOPOSIDE
     Indication: Retinoblastoma
     Dosage: UNK
     Route: 065
  4. MELPHALAN [Suspect]
     Active Substance: MELPHALAN
     Indication: Retinoblastoma
     Dosage: 3 MG, UNKNOWN
     Route: 013
  5. MELPHALAN [Suspect]
     Active Substance: MELPHALAN
     Dosage: 5 MG, UNKNOWN
     Route: 013
  6. VINCRISTINE [Suspect]
     Active Substance: VINCRISTINE
     Indication: Retinoblastoma
     Dosage: UNK
     Route: 065
  7. CARBOPLATIN [Suspect]
     Active Substance: CARBOPLATIN
     Indication: Retinoblastoma
     Dosage: 30 MG, UNKNOWN
     Route: 013

REACTIONS (5)
  - Retinal haemorrhage [Recovered/Resolved]
  - Retinal detachment [Recovered/Resolved]
  - Incorrect route of product administration [Unknown]
  - Drug ineffective for unapproved indication [Unknown]
  - Product use issue [Unknown]

NARRATIVE: CASE EVENT DATE: 20191001
